FAERS Safety Report 6504336-X (Version None)
Quarter: 2009Q4

REPORT INFORMATION
  Report Type: 
  Country: None (occurrence: None)
  Receive Date: 20091217
  Receipt Date: 20091210
  Transmission Date: 20100525
  Serious: Yes (Other)
  Sender: FDA-Public Use
  Company Number: CA-AMGEN-QUU377446

PATIENT
  Sex: Female
  Weight: 75.6 kg

DRUGS (14)
  1. NEULASTA [Suspect]
     Indication: CHEMOTHERAPY
     Route: 058
     Dates: start: 20091127, end: 20091127
  2. NEUPOGEN [Suspect]
     Indication: CHEMOTHERAPY
     Route: 058
     Dates: start: 20091027, end: 20091112
  3. ELTROXIN [Concomitant]
     Route: 048
     Dates: start: 20060201
  4. STEMETIL [Concomitant]
     Dates: start: 20090831
  5. KYTRIL [Concomitant]
     Dates: start: 20090831
  6. DECADRON [Concomitant]
     Dates: start: 20090831
  7. APREPITANT [Concomitant]
     Dates: start: 20091027
  8. CYCLOPHOSPHAMIDE [Concomitant]
     Dates: start: 20091008
  9. DOXORUBICIN HCL [Concomitant]
     Dates: start: 20091008
  10. ZOFRAN [Concomitant]
     Route: 042
     Dates: start: 20091019
  11. MAXERAN [Concomitant]
     Route: 042
     Dates: start: 20091019
  12. INFLUENZA VACCINE [Concomitant]
  13. NORMAL SALINE [Concomitant]
     Route: 042
     Dates: start: 20091128
  14. METAMUCIL [Concomitant]

REACTIONS (13)
  - CHEST DISCOMFORT [None]
  - CONSTIPATION [None]
  - DYSPNOEA [None]
  - ERYTHEMA [None]
  - FATIGUE [None]
  - FLUSHING [None]
  - HAEMORRHOIDAL HAEMORRHAGE [None]
  - HYPERSENSITIVITY [None]
  - NEUTROPHIL COUNT DECREASED [None]
  - NEUTROPHIL COUNT INCREASED [None]
  - OEDEMA PERIPHERAL [None]
  - PERIORBITAL OEDEMA [None]
  - SWELLING FACE [None]
